FAERS Safety Report 9389132 (Version 1)
Quarter: 2013Q3

REPORT INFORMATION
  Report Type: Spontaneous
  Country: US (occurrence: US)
  Receive Date: 20130708
  Receipt Date: 20130708
  Transmission Date: 20140515
  Serious: No
  Sender: FDA-Public Use
  Company Number: US-AMGEN-USASP2013039959

PATIENT
  Age: 64 Year
  Sex: Female

DRUGS (4)
  1. ENBREL [Suspect]
     Indication: RHEUMATOID ARTHRITIS
     Dosage: 50 MG, WEEKLY
     Route: 065
     Dates: start: 20130518
  2. SPIRIVA [Concomitant]
     Dosage: INHALER TAKEN DAILY
  3. PRILOSEC                           /00661201/ [Concomitant]
     Dosage: 20 MG, DAILY
  4. LEFLUNOMIDE [Concomitant]
     Dosage: 10 MG, EVERY OTHER DAY

REACTIONS (2)
  - Injection site pruritus [Not Recovered/Not Resolved]
  - Injection site erythema [Not Recovered/Not Resolved]
